FAERS Safety Report 25960892 (Version 1)
Quarter: 2025Q4

REPORT INFORMATION
  Report Type: Other
  Country: US (occurrence: US)
  Receive Date: 20251027
  Receipt Date: 20251027
  Transmission Date: 20260118
  Serious: No
  Sender: TRAVERE THERAPEUTICS
  Company Number: US-TRAVERE-2025TVT01871

PATIENT
  Sex: Female

DRUGS (2)
  1. FILSPARI [Suspect]
     Active Substance: SPARSENTAN
     Indication: IgA nephropathy
     Route: 048
     Dates: start: 20250822
  2. FILSPARI [Suspect]
     Active Substance: SPARSENTAN
     Dosage: CUT 400 MG TABLETS IN HALF
     Route: 048

REACTIONS (3)
  - Dry mouth [Recovering/Resolving]
  - Dysgeusia [Unknown]
  - Off label use [Unknown]
